FAERS Safety Report 12843792 (Version 2)
Quarter: 2016Q4

REPORT INFORMATION
  Report Type: Spontaneous
  Country: FR (occurrence: FR)
  Receive Date: 20161013
  Receipt Date: 20161031
  Transmission Date: 20170207
  Serious: Yes (Life-Threatening, Hospitalization)
  Sender: FDA-Public Use
  Company Number: FR-GUERBET LLC-1058311

PATIENT
  Age: 26 Year
  Sex: Male

DRUGS (1)
  1. OPTIRAY [Suspect]
     Active Substance: IOVERSOL
     Indication: SCAN
     Route: 042
     Dates: start: 20161004, end: 20161004

REACTIONS (10)
  - Bronchospasm [Recovered/Resolved]
  - Cyanosis [Recovered/Resolved]
  - Dyspnoea [Recovered/Resolved]
  - Hyperthermia [Recovered/Resolved]
  - Angioedema [Recovered/Resolved]
  - Erythema [Recovered/Resolved]
  - Hypotension [Recovered/Resolved]
  - Nausea [Recovered/Resolved]
  - Tachycardia [Recovered/Resolved]
  - Type I hypersensitivity [Recovered/Resolved]

NARRATIVE: CASE EVENT DATE: 20161004
